FAERS Safety Report 9412301 (Version 2)
Quarter: 2014Q2

REPORT INFORMATION
  Report Type: Spontaneous
  Country: IT (occurrence: IT)
  Receive Date: 20130722
  Receipt Date: 20140401
  Transmission Date: 20141212
  Serious: Yes (Other)
  Sender: FDA-Public Use
  Company Number: IT-PFIZER INC-2013211664

PATIENT
  Age: 77 Year
  Sex: Male

DRUGS (5)
  1. SUTENT [Suspect]
     Indication: RENAL CANCER
     Dosage: 50 MG, 1X/DAY
     Route: 048
     Dates: start: 20130219
  2. SUTENT [Suspect]
     Dosage: 37.5 MG, 1X/DAY
  3. EUTIROX [Concomitant]
     Route: 048
  4. TORVAST [Concomitant]
     Route: 048
  5. CARDIOASPIRIN [Concomitant]
     Route: 048

REACTIONS (4)
  - Abdominal pain upper [Recovered/Resolved]
  - Hyperbilirubinaemia [Recovered/Resolved]
  - Palmar-plantar erythrodysaesthesia syndrome [Recovered/Resolved]
  - Pruritus generalised [Recovered/Resolved]
